FAERS Safety Report 5288153-7 (Version None)
Quarter: 2007Q2

REPORT INFORMATION
  Report Type: 
  Country: None (occurrence: None)
  Receive Date: 20070405
  Receipt Date: 20070330
  Transmission Date: 20071010
  Serious: No
  Sender: FDA-Public Use
  Company Number: 2006UW10796

PATIENT
  Sex: Female
  Weight: 49.9 kg

DRUGS (7)
  1. SEROQUEL [Suspect]
     Indication: MENTAL DISORDER
     Route: 048
     Dates: start: 20040101, end: 20060101
  2. ABILIFY [Concomitant]
     Dates: start: 19970101
  3. GEODON [Concomitant]
     Dates: start: 20010101
  4. HALDOL [Concomitant]
     Dates: start: 20000101
  5. STELAZINE [Concomitant]
     Dates: start: 19960101
  6. TRILAFON [Concomitant]
     Dates: start: 19930101, end: 19960101
  7. ZYPREXA [Concomitant]
     Dates: start: 20010401

REACTIONS (1)
  - DIABETES MELLITUS [None]
